FAERS Safety Report 5398970-0 (Version None)
Quarter: 2007Q3

REPORT INFORMATION
  Report Type: 
  Country: None (occurrence: None)
  Receive Date: 20070724
  Receipt Date: 20070724
  Transmission Date: 20080115
  Serious: Yes (Hospitalization)
  Sender: FDA-Public Use
  Company Number: None

PATIENT
  Age: 75 Year
  Sex: Male

DRUGS (2)
  1. PROMETHAZINE [Suspect]
     Dosage: 12.5 MG PRN PO
     Route: 048
     Dates: start: 20070606, end: 20070619
  2. ETHAMBUTOL HYDROCHLORIDE [Suspect]
     Dosage: 800MG EVERY DAY PO
     Route: 048
     Dates: start: 20070606, end: 20070619

REACTIONS (2)
  - CONFUSIONAL STATE [None]
  - MENTAL STATUS CHANGES [None]
